FAERS Safety Report 13671281 (Version 1)
Quarter: 2017Q2

REPORT INFORMATION
  Report Type: Spontaneous
  Country: US (occurrence: US)
  Receive Date: 20170620
  Receipt Date: 20170620
  Transmission Date: 20170830
  Serious: No
  Sender: FDA-Public Use
  Company Number: US-ROCHE-1199132

PATIENT
  Sex: Female

DRUGS (1)
  1. XELODA [Suspect]
     Active Substance: CAPECITABINE
     Indication: BREAST CANCER
     Dosage: 24/02/2013
     Route: 065
     Dates: start: 20130210

REACTIONS (4)
  - Tumour marker increased [Unknown]
  - Carcinoembryonic antigen decreased [Unknown]
  - Carbohydrate antigen 27.29 increased [Unknown]
  - Carbohydrate antigen 15-3 increased [Unknown]
